FAERS Safety Report 9081443 (Version 1)
Quarter: 2013Q1

REPORT INFORMATION
  Report Type: Report from Study
  Country: US (occurrence: US)
  Receive Date: 20130130
  Receipt Date: 20130130
  Transmission Date: 20140127
  Serious: No
  Sender: FDA-Public Use
  Company Number: US-ABBOTT-12P-163-0967721-00

PATIENT
  Age: 44 Year
  Sex: Female

DRUGS (5)
  1. HUMIRA [Suspect]
     Indication: PSORIASIS
     Dates: start: 20120619, end: 20120731
  2. ALEVE [Concomitant]
     Indication: HEADACHE
  3. ALLERGY MEDS OTC [Concomitant]
     Indication: PRODUCT USED FOR UNKNOWN INDICATION
  4. PHENTERMINE [Concomitant]
     Indication: WEIGHT LOSS DIET
  5. AMBIEN [Concomitant]
     Indication: INSOMNIA

REACTIONS (3)
  - Back pain [Recovering/Resolving]
  - Nausea [Recovering/Resolving]
  - Kidney infection [Recovering/Resolving]
